FAERS Safety Report 6130161-8 (Version None)
Quarter: 2009Q1

REPORT INFORMATION
  Report Type: 
  Country: None (occurrence: None)
  Receive Date: 20090324
  Receipt Date: 20090309
  Transmission Date: 20090719
  Serious: Yes (Death)
  Sender: FDA-Public Use
  Company Number: US-PFIZER INC-2009180539

PATIENT
  Age: 21 Year
  Sex: Female

DRUGS (2)
  1. DEPO-PROVERA [Suspect]
     Indication: CONTRACEPTION
  2. NORDETTE-21 [Suspect]
     Indication: CONTRACEPTION

REACTIONS (1)
  - CEREBRAL VENOUS THROMBOSIS [None]
